FAERS Safety Report 7234122-7 (Version None)
Quarter: 2011Q1

REPORT INFORMATION
  Report Type: 
  Country: None (occurrence: None)
  Receive Date: 20110119
  Receipt Date: 20110110
  Transmission Date: 20110831
  Serious: Yes (Hospitalization)
  Sender: FDA-Public Use
  Company Number: FR-ASTRAZENECA-2011SE02497

PATIENT
  Age: 66 Year
  Sex: Male

DRUGS (2)
  1. ENTOCORT EC [Suspect]
     Indication: AUTOIMMUNE HEPATITIS
     Route: 048
     Dates: start: 20101107
  2. ENTOCORT EC [Suspect]
     Route: 048

REACTIONS (1)
  - MANIA [None]
